FAERS Safety Report 7945254-X (Version None)
Quarter: 2011Q4

REPORT INFORMATION
  Report Type: 
  Country: None (occurrence: None)
  Receive Date: 20111129
  Receipt Date: 20110927
  Transmission Date: 20120403
  Serious: No
  Sender: FDA-Public Use
  Company Number: US-GLAXOSMITHKLINE-A0946183A

PATIENT
  Age: 60 Year
  Sex: Female

DRUGS (5)
  1. THEOPHYLLINE [Concomitant]
  2. FLONASE [Concomitant]
  3. UNKNOWN MEDICATION [Concomitant]
  4. FLOVENT [Suspect]
     Indication: DYSPNOEA
     Dosage: 1PUFF TWICE PER DAY
     Route: 055
     Dates: start: 20090101, end: 20110901
  5. SPIRIVA [Concomitant]

REACTIONS (2)
  - DRY MOUTH [None]
  - OROPHARYNGEAL PAIN [None]
